FAERS Safety Report 25230883 (Version 1)
Quarter: 2025Q2

REPORT INFORMATION
  Report Type: Spontaneous
  Country: US (occurrence: US)
  Receive Date: 20250423
  Receipt Date: 20250423
  Transmission Date: 20250717
  Serious: No
  Sender: COREPHARMA LLC
  Company Number: US-CorePharma LLC-2175459

PATIENT
  Age: 72 Year
  Sex: Male
  Weight: 97.727 kg

DRUGS (3)
  1. LISINOPRIL [Suspect]
     Active Substance: LISINOPRIL
     Indication: Product used for unknown indication
  2. AMLODIPINE [Suspect]
     Active Substance: AMLODIPINE BESYLATE
  3. HYDROCHLOROTHIAZIDE [Suspect]
     Active Substance: HYDROCHLOROTHIAZIDE

REACTIONS (5)
  - Abdominal distension [Unknown]
  - Constipation [Unknown]
  - Fatigue [Unknown]
  - Abdominal pain [Unknown]
  - Cough [Unknown]
